FAERS Safety Report 12114977 (Version 1)
Quarter: 2016Q1

REPORT INFORMATION
  Report Type: Spontaneous
  Country: US (occurrence: US)
  Receive Date: 20160225
  Receipt Date: 20160225
  Transmission Date: 20160526
  Serious: Yes (Hospitalization)
  Sender: FDA-Public Use
  Company Number: US-JNJFOC-20160224353

PATIENT
  Sex: Female
  Weight: 40.82 kg

DRUGS (2)
  1. RISPERDAL [Suspect]
     Active Substance: RISPERIDONE
     Indication: BIPOLAR DISORDER
     Route: 065
     Dates: start: 2001
  2. LORAZEPAM. [Concomitant]
     Active Substance: LORAZEPAM
     Indication: SLEEP DISORDER THERAPY
     Dosage: LOWEST DOSE
     Route: 065

REACTIONS (5)
  - Drug ineffective [Recovered/Resolved]
  - Hospitalisation [Unknown]
  - Unevaluable event [Unknown]
  - Hallucination, auditory [Recovered/Resolved]
  - Weight increased [Not Recovered/Not Resolved]
